FAERS Safety Report 25964060 (Version 1)
Quarter: 2025Q4

REPORT INFORMATION
  Report Type: Spontaneous
  Country: US (occurrence: None)
  Receive Date: 20251026
  Receipt Date: 20251026
  Transmission Date: 20260118
  Serious: No
  Sender: FDA-CTU
  Company Number: None

PATIENT
  Sex: Female

DRUGS (1)
  1. CAPECITABINE [Suspect]
     Active Substance: CAPECITABINE
     Indication: Breast cancer
     Dosage: OTHER FREQUENCY : TAKE 3 TABLETS BY MOUTH IN THE MORNING AND 3 TABLETS IN THE EVENING FOR 14 DAYS ON THEN 7 DAYS OFF.?
     Route: 048
     Dates: start: 20241003

REACTIONS (2)
  - Therapy interrupted [None]
  - Skin fissures [None]
